FAERS Safety Report 16432128 (Version 1)
Quarter: 2019Q3

REPORT INFORMATION
  Report Type: Spontaneous
  Country: US (occurrence: US)
  Receive Date: 20190614
  Receipt Date: 20190614
  Transmission Date: 20191004
  Serious: Yes (Other)
  Sender: FDA-Public Use
  Company Number: None

PATIENT
  Age: 61 Year
  Sex: Male

DRUGS (1)
  1. MAVYRET [Suspect]
     Active Substance: GLECAPREVIR\PIBRENTASVIR
     Indication: CHRONIC HEPATITIS C
     Route: 048
     Dates: start: 20190318, end: 20190603

REACTIONS (7)
  - Ascites [None]
  - Diarrhoea [None]
  - Abdominal distension [None]
  - Peripheral vascular disorder [None]
  - Oedema peripheral [None]
  - Portal hypertension [None]
  - Jaundice [None]

NARRATIVE: CASE EVENT DATE: 20190520
